FAERS Safety Report 4621881-2 (Version None)
Quarter: 2005Q1

REPORT INFORMATION
  Report Type: 
  Country: None (occurrence: None)
  Receive Date: 20050329
  Receipt Date: 20050314
  Transmission Date: 20050727
  Serious: Yes (Other)
  Sender: FDA-Public Use
  Company Number: JP-JNJFOC-20050306078

PATIENT
  Age: 86 Year
  Sex: Female

DRUGS (2)
  1. ITRIZOLE [Suspect]
     Indication: FUNGAL INFECTION
     Route: 049
  2. MEROPENEM [Concomitant]

REACTIONS (4)
  - LEUKOPENIA [None]
  - PNEUMONIA [None]
  - THROMBOCYTOPENIA [None]
  - VIRAL INFECTION [None]
